FAERS Safety Report 4822657-3 (Version None)
Quarter: 2005Q4

REPORT INFORMATION
  Report Type: 
  Country: None (occurrence: None)
  Receive Date: 20051107
  Receipt Date: 20051107
  Transmission Date: 20060501
  Serious: Yes (Hospitalization, Other)
  Sender: FDA-Public Use
  Company Number: None

PATIENT
  Sex: Female
  Weight: 79.6 kg

DRUGS (3)
  1. CYCLOPHOSPHAMIDE [Suspect]
     Indication: MULTIPLE MYELOMA
     Dosage: SEE IMAGE
     Route: 042
     Dates: start: 20051027
  2. MESNA [Suspect]
     Dosage: SEE IMAGE
     Route: 042
     Dates: start: 20051027
  3. G-CSF [Suspect]
     Dosage: SEE MAGE
     Route: 058
     Dates: start: 20051027

REACTIONS (2)
  - NAUSEA [None]
  - VOMITING [None]
